FAERS Safety Report 6109859-3 (Version None)
Quarter: 2009Q1

REPORT INFORMATION
  Report Type: 
  Country: None (occurrence: None)
  Receive Date: 20090310
  Receipt Date: 20080807
  Transmission Date: 20090719
  Serious: No
  Sender: FDA-Public Use
  Company Number: A0737863A

PATIENT
  Age: 60 Year
  Sex: Male

DRUGS (1)
  1. NICORETTE [Suspect]
     Indication: ILL-DEFINED DISORDER
     Dates: end: 20080713

REACTIONS (3)
  - INTENTIONAL DRUG MISUSE [None]
  - ORAL DISCOMFORT [None]
  - PRODUCT QUALITY ISSUE [None]
